FAERS Safety Report 4589530-X (Version None)
Quarter: 2005Q1

REPORT INFORMATION
  Report Type: 
  Country: None (occurrence: None)
  Receive Date: 20050216
  Receipt Date: 20041227
  Transmission Date: 20050727
  Serious: Yes (Hospitalization)
  Sender: FDA-Public Use
  Company Number: 2005008102

PATIENT
  Age: 61 Year
  Sex: Female

DRUGS (13)
  1. SOLU-MEDROL [Suspect]
     Indication: ILL-DEFINED DISORDER
     Dosage: 80 MG (40 MG/2 ML TWICE A DAY), INTRAVENOUS
     Route: 042
     Dates: start: 20041102, end: 20041102
  2. CARBOPLATIN [Suspect]
     Indication: OVARIAN CANCER
     Dosage: 510 MG (DAILY), INTRAVENOUS
     Route: 042
     Dates: start: 20041102, end: 20041102
  3. TRANXENE [Suspect]
     Indication: ILL-DEFINED DISORDER
     Dosage: 20 MG (20 MG/2 ML DAILY), INTRAVENOUS
     Route: 042
     Dates: start: 20041102, end: 20041102
  4. RANITIDINE HCL [Suspect]
     Indication: ILL-DEFINED DISORDER
     Dosage: 100 MG (DAILY), INTRAVENOUS
     Route: 042
     Dates: start: 20041102, end: 20041102
  5. ONDANSETRON HCL [Suspect]
     Indication: ILL-DEFINED DISORDER
     Dosage: 8 MG (2 MG/ML FOUR TIMES A DAY), INTRAVENOUS
     Route: 042
     Dates: start: 20041102, end: 20041102
  6. PACLITAXEL [Suspect]
     Indication: OVARIAN CANCER
     Dosage: 234 MG (30 MG/5 ML DAILY), INTRAVENOUS
     Route: 042
     Dates: start: 20041102, end: 20041102
  7. DEXCHLORPHENIRAMINE MALEATE [Concomitant]
  8. ZOLPIDEM TARTRATE [Concomitant]
  9. BROMAZEPAM (BROMAZEPAM) [Concomitant]
  10. ACETAMINOPHEN [Concomitant]
  11. SMECTITE (SMECTITE) [Concomitant]
  12. BECLOMETHASONE DIPROPIONATE [Concomitant]
  13. LOPERAMIDE HYDROCHLORIDE [Concomitant]

REACTIONS (2)
  - ATRIOVENTRICULAR BLOCK COMPLETE [None]
  - SYNCOPE [None]
